FAERS Safety Report 7582377-1 (Version None)
Quarter: 2011Q2

REPORT INFORMATION
  Report Type: 
  Country: None (occurrence: None)
  Receive Date: 20110630
  Receipt Date: 20110623
  Transmission Date: 20111010
  Serious: Yes (Other)
  Sender: FDA-Public Use
  Company Number: US-JNJFOC-20110611379

PATIENT
  Sex: Female
  Weight: 92.99 kg

DRUGS (1)
  1. SIMPONI [Suspect]
     Indication: ANKYLOSING SPONDYLITIS
     Route: 058
     Dates: start: 20100501

REACTIONS (6)
  - FIBROMYALGIA [None]
  - INJECTION SITE PAIN [None]
  - ANXIETY [None]
  - DRUG DOSE OMISSION [None]
  - HYPOTHYROIDISM [None]
  - DEVICE LEAKAGE [None]
